FAERS Safety Report 16206473 (Version 1)
Quarter: 2019Q2

REPORT INFORMATION
  Report Type: Spontaneous
  Country: US (occurrence: US)
  Receive Date: 20190416
  Receipt Date: 20190416
  Transmission Date: 20190711
  Serious: Yes (Other)
  Sender: FDA-Public Use
  Company Number: None

PATIENT
  Age: 76 Year
  Sex: Male
  Weight: 88 kg

DRUGS (12)
  1. MIRALAX [Concomitant]
     Active Substance: POLYETHYLENE GLYCOL 3350
  2. GLEOSTINE [Suspect]
     Active Substance: LOMUSTINE
     Indication: BRAIN NEOPLASM MALIGNANT
     Dosage: ?          OTHER FREQUENCY:EVERY 6 WK;?
     Route: 048
     Dates: start: 20190312
  3. AMIODARONE [Concomitant]
     Active Substance: AMIODARONE
  4. AVASTIN [Concomitant]
     Active Substance: BEVACIZUMAB
  5. GLEOSTINE [Suspect]
     Active Substance: LOMUSTINE
     Indication: BRAIN NEOPLASM MALIGNANT
     Dosage: ?          OTHER FREQUENCY:EVERY 6 WK;?
     Route: 048
     Dates: start: 20190312
  6. DIGOXIN. [Concomitant]
     Active Substance: DIGOXIN
  7. DEXAMETHASONE. [Concomitant]
     Active Substance: DEXAMETHASONE
  8. IBUPROFEN. [Concomitant]
     Active Substance: IBUPROFEN
  9. MULTI VITAMIN [Concomitant]
     Active Substance: VITAMINS
  10. VITAMIN C [Concomitant]
     Active Substance: ASCORBIC ACID
  11. BENADRYL [Concomitant]
     Active Substance: DIPHENHYDRAMINE HYDROCHLORIDE
  12. NORVASC [Concomitant]
     Active Substance: AMLODIPINE BESYLATE

REACTIONS (2)
  - Dysphonia [None]
  - Dyspnoea [None]

NARRATIVE: CASE EVENT DATE: 20190315
